FAERS Safety Report 5070724-4 (Version None)
Quarter: 2006Q3

REPORT INFORMATION
  Report Type: 
  Country: None (occurrence: None)
  Receive Date: 20060804
  Receipt Date: 20051024
  Transmission Date: 20061208
  Serious: No
  Sender: FDA-Public Use
  Company Number: US-GLAXOSMITHKLINE-A0579297A

PATIENT
  Age: 54 Year
  Sex: Male

DRUGS (1)
  1. EQUATE NICOTINE GUM 4MG [Suspect]

REACTIONS (1)
  - TOOTHACHE [None]
